FAERS Safety Report 13421105 (Version 1)
Quarter: 2017Q2

REPORT INFORMATION
  Report Type: Spontaneous
  Country: US (occurrence: US)
  Receive Date: 20170410
  Receipt Date: 20170410
  Transmission Date: 20170830
  Serious: No
  Sender: FDA-Public Use
  Company Number: US-ENDO PHARMACEUTICALS INC-2017-000764

PATIENT
  Sex: Female

DRUGS (1)
  1. AMPICILLIN CAPSULES 500 MG [Suspect]
     Active Substance: AMPICILLIN
     Indication: ANTIBIOTIC THERAPY
     Dosage: UNK UNK, UNKNOWN
     Route: 048

REACTIONS (1)
  - Hypersensitivity [Recovering/Resolving]
